FAERS Safety Report 9786288 (Version 2)
Quarter: 2014Q1

REPORT INFORMATION
  Report Type: Spontaneous
  Country: FR (occurrence: FR)
  Receive Date: 20131227
  Receipt Date: 20140127
  Transmission Date: 20141002
  Serious: Yes (Other)
  Sender: FDA-Public Use
  Company Number: FR-TEVA-452210ISR

PATIENT
  Sex: Male

DRUGS (1)
  1. COPAXONE [Suspect]
     Dates: start: 2009

REACTIONS (2)
  - Multiple sclerosis relapse [Not Recovered/Not Resolved]
  - Deafness bilateral [Not Recovered/Not Resolved]
